FAERS Safety Report 7910571-6 (Version None)
Quarter: 2011Q4

REPORT INFORMATION
  Report Type: 
  Country: None (occurrence: None)
  Receive Date: 20111111
  Receipt Date: 20111108
  Transmission Date: 20120403
  Serious: Yes (Other)
  Sender: FDA-Public Use
  Company Number: PHHY2011AU96958

PATIENT
  Sex: Male

DRUGS (4)
  1. SERTRALINE HYDROCHLORIDE [Concomitant]
     Dosage: 50 MG, NOCTE
     Route: 065
  2. CLOZARIL [Suspect]
     Dosage: 275 MG
     Route: 065
     Dates: end: 20111101
  3. COLECALCIFEROL [Concomitant]
     Dosage: 25 UG, DAILY
     Route: 065
  4. CLOZARIL [Suspect]
     Indication: SCHIZOPHRENIA
     Dosage: 300 MG
     Route: 065
     Dates: start: 20111015

REACTIONS (9)
  - INFLUENZA LIKE ILLNESS [None]
  - TROPONIN INCREASED [None]
  - MYOCARDITIS [None]
  - C-REACTIVE PROTEIN INCREASED [None]
  - CHEST PAIN [None]
  - BLOOD CREATINE PHOSPHOKINASE INCREASED [None]
  - LEFT ATRIAL DILATATION [None]
  - DYSPNOEA [None]
  - TACHYCARDIA [None]
